FAERS Safety Report 4445988-8 (Version None)
Quarter: 2004Q3

REPORT INFORMATION
  Report Type: 
  Country: None (occurrence: None)
  Receive Date: 20040910
  Receipt Date: 20040901
  Transmission Date: 20050211
  Serious: Yes (Other)
  Sender: FDA-Public Use
  Company Number: NZ-ROCHE-379021

PATIENT
  Age: 45 Year
  Sex: Female

DRUGS (2)
  1. PEGASYS [Suspect]
     Indication: HEPATITIS C
     Route: 058
     Dates: start: 20040715
  2. COPEGUS [Concomitant]
     Indication: HEPATITIS C
     Dosage: DOSAGE REGIMEN REPORTED AS DAILY
     Route: 048
     Dates: start: 20040715

REACTIONS (1)
  - THROMBOPHLEBITIS SUPERFICIAL [None]
